FAERS Safety Report 11981586 (Version 1)
Quarter: 2016Q1

REPORT INFORMATION
  Report Type: Report from Study
  Country: CN (occurrence: CN)
  Receive Date: 20160131
  Receipt Date: 20160131
  Transmission Date: 20160526
  Serious: Yes (Other)
  Sender: FDA-Public Use
  Company Number: CN-BRISTOL-MYERS SQUIBB COMPANY-17247263

PATIENT
  Age: 24 Year
  Sex: Female

DRUGS (1)
  1. ENTECAVIR. [Suspect]
     Active Substance: ENTECAVIR
     Indication: PRODUCT USED FOR UNKNOWN INDICATION
     Dosage: .5 MG, QD
     Route: 050
     Dates: start: 20070417

REACTIONS (3)
  - Therapeutic procedure [Unknown]
  - Exposure via body fluid [Unknown]
  - Abortion spontaneous [Unknown]
